FAERS Safety Report 9336427 (Version 1)
Quarter: 2013Q2

REPORT INFORMATION
  Report Type: Report from Study
  Country: AU (occurrence: AU)
  Receive Date: 20130607
  Receipt Date: 20130607
  Transmission Date: 20140414
  Serious: Yes (Hospitalization, Other)
  Sender: FDA-Public Use
  Company Number: AU-PURDUE-USA-2013-0102974

PATIENT
  Age: 59 Year
  Sex: Male
  Weight: 129 kg

DRUGS (16)
  1. DILAUDID TABLET [Suspect]
     Indication: BACK PAIN
     Dosage: 10-15MG PRN
     Dates: start: 20121207
  2. CARBOPLATIN [Suspect]
     Indication: NON-SMALL CELL LUNG CANCER
     Dosage: UNK
     Dates: start: 20121219
  3. PEMETREXED [Suspect]
     Indication: NON-SMALL CELL LUNG CANCER
     Dosage: UNK
     Dates: start: 20121219
  4. JURNISTA [Concomitant]
     Indication: BACK PAIN
     Dosage: UNK
     Dates: start: 20121207, end: 20130109
  5. ACETYLSALICYLIC ACID [Concomitant]
     Indication: PROPHYLAXIS
     Dosage: UNK
     Dates: start: 201211
  6. PANADEINE                          /00116401/ [Concomitant]
     Indication: BACK PAIN
     Dosage: UNK
     Dates: start: 201211
  7. DOCUSATE SODIUM\SENNOSIDES [Concomitant]
     Indication: CONSTIPATION PROPHYLAXIS
     Dosage: UNK
     Dates: start: 201211
  8. DEXAMETHASONE [Concomitant]
     Indication: BACK PAIN
     Dosage: UNK
     Dates: start: 20121208, end: 20130109
  9. COVERSYL                           /00790702/ [Concomitant]
     Indication: HYPERTENSION
     Dosage: UNK
     Dates: start: 2007, end: 20130109
  10. NUROFEN [Concomitant]
     Indication: BACK PAIN
     Dosage: UNK
     Dates: start: 20121122, end: 20130109
  11. CLEXANE [Concomitant]
     Indication: PARANEOPLASTIC SYNDROME
     Dosage: UNK
     Dates: start: 201211
  12. LACTULOSE [Concomitant]
     Indication: CONSTIPATION PROPHYLAXIS
     Dosage: UNK
     Dates: start: 201210
  13. PRAMIN                             /00041902/ [Concomitant]
     Indication: NAUSEA
     Dosage: UNK
     Dates: start: 20121219
  14. PRAMIN                             /00041902/ [Concomitant]
     Indication: VOMITING
  15. LASIX                              /00032601/ [Concomitant]
     Indication: OEDEMA PERIPHERAL
     Dosage: UNK
     Dates: start: 201210
  16. SLOW-K [Concomitant]
     Indication: HYPOKALAEMIA
     Dosage: UNK
     Dates: start: 20130102

REACTIONS (7)
  - Overdose [Recovered/Resolved]
  - Cellulitis [Unknown]
  - Fall [Unknown]
  - Local swelling [Unknown]
  - Wound [Unknown]
  - Confusional state [Unknown]
  - Pain in extremity [Unknown]
